FAERS Safety Report 13937334 (Version 3)
Quarter: 2017Q4

REPORT INFORMATION
  Report Type: Spontaneous
  Country: TR (occurrence: TR)
  Receive Date: 20170905
  Receipt Date: 20171004
  Transmission Date: 20180320
  Serious: Yes (Death)
  Sender: FDA-Public Use
  Company Number: TR-BAYER-2017-163505

PATIENT
  Sex: Male

DRUGS (1)
  1. CORASPIN 100 MG [Suspect]
     Active Substance: ASPIRIN
     Dosage: UNK

REACTIONS (2)
  - Haemorrhage intracranial [Fatal]
  - Hypertension [Fatal]
